FAERS Safety Report 6557863-3 (Version None)
Quarter: 2010Q1

REPORT INFORMATION
  Report Type: 
  Country: None (occurrence: None)
  Receive Date: 20100129
  Receipt Date: 20100122
  Transmission Date: 20100710
  Serious: Yes (Death, Life-Threatening, Hospitalization)
  Sender: FDA-Public Use
  Company Number: FR-WYE-G05406410

PATIENT
  Sex: Male

DRUGS (12)
  1. TAZOCILLINE [Suspect]
     Dosage: UNKNOWN
     Route: 042
     Dates: start: 20081113, end: 20081114
  2. CIPROFLOXACIN HCL [Suspect]
     Dosage: UNKNOWN
     Route: 042
     Dates: start: 20081113, end: 20081124
  3. CIPROFLOXACIN HCL [Suspect]
     Dosage: UNKNOWN
     Route: 042
     Dates: start: 20081202, end: 20081206
  4. TRILEPTAL [Suspect]
     Dosage: 600 MG TOTAL DAILY
     Route: 048
     Dates: start: 20081211, end: 20081217
  5. SIMVASTATIN [Concomitant]
     Dosage: UNKNOWN
  6. FLAGYL [Concomitant]
     Dosage: UNKNOWN
     Dates: start: 20081115
  7. TIENAM [Concomitant]
     Dosage: UNKNOWN
     Dates: start: 20081202, end: 20081206
  8. ZYVOXID [Concomitant]
     Dosage: UNKNOWN
     Dates: start: 20081218
  9. GENTAMICIN [Concomitant]
  10. KEPPRA [Suspect]
     Dosage: UNKNOWN
     Route: 048
     Dates: start: 20071101, end: 20081113
  11. KEPPRA [Suspect]
     Dosage: UNKNOWN
     Route: 048
     Dates: start: 20081128, end: 20081207
  12. ROCEPHIN [Suspect]
     Dosage: UNKNOWN
     Route: 042
     Dates: start: 20081115, end: 20081124

REACTIONS (17)
  - ALANINE AMINOTRANSFERASE INCREASED [None]
  - ANURIA [None]
  - BILIRUBIN CONJUGATED INCREASED [None]
  - BLOOD DISORDER [None]
  - DERMATITIS EXFOLIATIVE [None]
  - EOSINOPHIL COUNT INCREASED [None]
  - HAEMATURIA [None]
  - HEPATIC FAILURE [None]
  - LUNG INFECTION PSEUDOMONAL [None]
  - MULTI-ORGAN FAILURE [None]
  - PYREXIA [None]
  - RASH MACULAR [None]
  - RASH MORBILLIFORM [None]
  - RASH PAPULAR [None]
  - SUPRAVENTRICULAR TACHYCARDIA [None]
  - TOXIC EPIDERMAL NECROLYSIS [None]
  - TOXIC SKIN ERUPTION [None]
